FAERS Safety Report 20381395 (Version 1)
Quarter: 2022Q1

REPORT INFORMATION
  Report Type: Spontaneous
  Country: US (occurrence: US)
  Receive Date: 20220127
  Receipt Date: 20220127
  Transmission Date: 20220423
  Serious: No
  Sender: FDA-Public Use
  Company Number: US-GLENMARK PHARMACEUTICALS-2021GMK068251

PATIENT

DRUGS (1)
  1. CLOBETASOL PROPIONATE [Suspect]
     Active Substance: CLOBETASOL PROPIONATE
     Indication: Psoriasis
     Dosage: UNK, 2 DAYS PER WEEK
     Route: 061

REACTIONS (4)
  - Accidental exposure to product [Unknown]
  - Product selection error [Unknown]
  - Product use issue [Unknown]
  - Headache [Recovered/Resolved]
